FAERS Safety Report 7197833-8 (Version None)
Quarter: 2010Q4

REPORT INFORMATION
  Report Type: 
  Country: None (occurrence: None)
  Receive Date: 20101227
  Receipt Date: 20101221
  Transmission Date: 20110411
  Serious: Yes (Hospitalization, Other)
  Sender: FDA-Public Use
  Company Number: BR-SANOFI-AVENTIS-2010SA077545

PATIENT
  Age: 73 Year
  Sex: Male
  Weight: 70 kg

DRUGS (8)
  1. LANTUS [Suspect]
     Route: 058
     Dates: start: 20090101
  2. SOLOSTAR [Suspect]
     Dates: start: 20090101
  3. ATENOLOL [Concomitant]
     Indication: HYPERTENSION
     Route: 048
  4. LOSARTAN [Concomitant]
     Indication: HYPERTENSION
     Route: 048
  5. SEROQUEL [Concomitant]
     Indication: SEDATION
     Route: 048
     Dates: start: 20100601
  6. ALL OTHER THERAPEUTIC PRODUCTS [Concomitant]
     Indication: DEMENTIA
     Route: 048
     Dates: start: 20100601
  7. EXELON [Concomitant]
     Indication: DEMENTIA
  8. INSULINS AND ANALOGUES,FAST-ACTING [Concomitant]
     Dosage: ACCORDING TO GLYCEMIA
     Route: 058

REACTIONS (3)
  - BLOOD GLUCOSE INCREASED [None]
  - DEMENTIA [None]
  - FEMUR FRACTURE [None]
